FAERS Safety Report 9165408 (Version 1)
Quarter: 2013Q1

REPORT INFORMATION
  Report Type: Spontaneous
  Country: GB (occurrence: None)
  Receive Date: 20130228
  Receipt Date: 20130228
  Transmission Date: 20140127
  Serious: Yes (Other)
  Sender: FDA-Public Use
  Company Number: GER/UKI/13/0028224

PATIENT
  Age: 61 Year
  Sex: Female
  Weight: 73.7 kg

DRUGS (7)
  1. ATORVASTATIN (ATORVASTATIN) [Suspect]
     Indication: PRODUCT USED FOR UNKNOWN INDICATION
     Dates: start: 20130131
  2. CANDESARTAN (CANDESARTAN) [Concomitant]
  3. FLUOXETINE (FLUOXETINE) [Concomitant]
  4. KENALOG [Concomitant]
  5. LIDOCAINE HYDROCHLORIDE (LIDOCAINE HYDROCHLORIDE) [Concomitant]
  6. NAPROXEN (NAPROXEN) [Concomitant]
  7. OMEPRAZOLE (OMEPRAZOLE) [Concomitant]

REACTIONS (2)
  - Pruritus [None]
  - Myalgia [None]
